FAERS Safety Report 8548340-9 (Version None)
Quarter: 2012Q3

REPORT INFORMATION
  Report Type: 
  Country: None (occurrence: None)
  Receive Date: 20120730
  Receipt Date: 20120709
  Transmission Date: 20120928
  Serious: No
  Sender: FDA-Public Use
  Company Number: US-JNJFOC-20120705812

PATIENT
  Sex: Male

DRUGS (2)
  1. INVEGA SUSTENNA [Suspect]
     Indication: PRODUCT USED FOR UNKNOWN INDICATION
     Route: 030
  2. INVEGA SUSTENNA [Suspect]
     Route: 030

REACTIONS (7)
  - UNEVALUABLE EVENT [None]
  - ANGER [None]
  - ABNORMAL BEHAVIOUR [None]
  - HORMONE LEVEL ABNORMAL [None]
  - PRODUCT QUALITY ISSUE [None]
  - MALAISE [None]
  - AGGRESSION [None]
